FAERS Safety Report 4974376-0 (Version None)
Quarter: 2006Q2

REPORT INFORMATION
  Report Type: 
  Country: None (occurrence: None)
  Receive Date: 20060411
  Receipt Date: 20060328
  Transmission Date: 20061013
  Serious: Yes (Other)
  Sender: FDA-Public Use
  Company Number: 2006042858

PATIENT
  Sex: Female

DRUGS (10)
  1. DIFLUCAN [Suspect]
     Indication: CANDIDIASIS
     Dosage: 100 MG (100 MG, EVERY DAY), ORAL
     Route: 048
  2. FLUCONAZOLE [Suspect]
     Indication: CANDIDIASIS
     Dosage: 100 MG (100 MG, EVERY DAY)
     Dates: start: 20060201
  3. NIZORAL [Suspect]
     Indication: CANDIDIASIS
     Dosage: (200 MG)
     Dates: start: 20060201, end: 20060101
  4. LEVOTHYROXINE SODIUM [Concomitant]
  5. MULTIVITAMIN AND MINERAL SUPPLEMENT (MINERALS NOS, VITAMINS NOS) [Concomitant]
  6. ASCORBIC ACID [Concomitant]
  7. ENZYMES [Concomitant]
  8. CALCIUM GLUCONATE [Concomitant]
  9. VITAMIN D [Concomitant]
  10. MAGNESIUM [Concomitant]

REACTIONS (6)
  - ALANINE AMINOTRANSFERASE INCREASED [None]
  - ASPARTATE AMINOTRANSFERASE INCREASED [None]
  - CANDIDIASIS [None]
  - DRUG INEFFECTIVE [None]
  - FATIGUE [None]
  - WEIGHT DECREASED [None]
